FAERS Safety Report 16019252 (Version 1)
Quarter: 2019Q1

REPORT INFORMATION
  Report Type: Spontaneous
  Country: US (occurrence: US)
  Receive Date: 20190228
  Receipt Date: 20190228
  Transmission Date: 20190418
  Serious: Yes (Hospitalization)
  Sender: FDA-Public Use
  Company Number: US-TEVA-2019-US-1017236

PATIENT
  Age: 75 Year
  Sex: Female

DRUGS (4)
  1. VANCOMYCIN [Interacting]
     Active Substance: VANCOMYCIN
     Indication: ANTIBIOTIC THERAPY
     Route: 042
  2. CEFEPIME [Suspect]
     Active Substance: CEFEPIME HYDROCHLORIDE
     Indication: ANTIBIOTIC THERAPY
     Route: 065
  3. TOBRAMYCIN. [Suspect]
     Active Substance: TOBRAMYCIN
     Indication: ANTIBIOTIC THERAPY
     Dosage: USED FOR ANTIBIOTIC-IMPREGNATED CEMENT SPACERS (ACS); TOBRAMYCIN ANTIBIOTIC BEADS; BONE CEMENT CO...
     Route: 065
  4. VACOMYCIN [Interacting]
     Active Substance: VANCOMYCIN
     Indication: ANTIBIOTIC THERAPY
     Dosage: USED FOR ANTIBIOTIC-IMPREGNATED CEMENT SPACERS (ACS); BONE CEMENT CONTAINING 3 G VANCOMYCIN PER 4...
     Route: 014

REACTIONS (4)
  - Acute kidney injury [Recovered/Resolved]
  - Drug interaction [Unknown]
  - Toxicity to various agents [Recovered/Resolved]
  - Haematuria [Recovered/Resolved]
